FAERS Safety Report 17016615 (Version 2)
Quarter: 2019Q4

REPORT INFORMATION
  Report Type: Spontaneous
  Country: US (occurrence: US)
  Receive Date: 20191111
  Receipt Date: 20191113
  Transmission Date: 20200122
  Serious: No
  Sender: FDA-Public Use
  Company Number: US-PFIZER INC-2019485751

PATIENT
  Age: 70 Year
  Sex: Female
  Weight: 69.16 kg

DRUGS (1)
  1. IBRANCE [Suspect]
     Active Substance: PALBOCICLIB
     Indication: BREAST CANCER FEMALE
     Dosage: 125 MG, CYCLIC (DAILY FOR 21 CONSECUTIVE DAYS FOLLOW)
     Route: 048
     Dates: start: 2016

REACTIONS (1)
  - Malaise [Recovering/Resolving]
